FAERS Safety Report 18384349 (Version 1)
Quarter: 2020Q4

REPORT INFORMATION
  Report Type: Spontaneous
  Country: US (occurrence: US)
  Receive Date: 20201014
  Receipt Date: 20201014
  Transmission Date: 20210114
  Serious: Yes (Other)
  Sender: FDA-Public Use
  Company Number: US-TEVA-2020-US-1838374

PATIENT

DRUGS (1)
  1. BUPROPION HYDROCHLORIDE ACTAVIS [Suspect]
     Active Substance: BUPROPION HYDROCHLORIDE
     Route: 065

REACTIONS (13)
  - Major depression [Unknown]
  - Irritability [Unknown]
  - Heart rate irregular [Unknown]
  - Anxiety [Unknown]
  - Product substitution issue [Unknown]
  - Palpitations [Unknown]
  - Confusional state [Unknown]
  - Intentional dose omission [Unknown]
  - Migraine [Unknown]
  - Product formulation issue [Unknown]
  - Hallucination [Unknown]
  - Suicidal ideation [Unknown]
  - Agitation [Unknown]
